FAERS Safety Report 7287768-4 (Version None)
Quarter: 2011Q1

REPORT INFORMATION
  Report Type: 
  Country: None (occurrence: None)
  Receive Date: 20110207
  Receipt Date: 20110207
  Transmission Date: 20110831
  Serious: Yes (Other)
  Sender: FDA-Public Use
  Company Number: None

PATIENT
  Age: 37 Year
  Sex: Female
  Weight: 86.1834 kg

DRUGS (1)
  1. IMIPRAMINE HCL [Suspect]
     Indication: NARCOLEPSY
     Dosage: 4 TABLETS -100MG- ONCE AT BEDTIME PO
     Route: 048
     Dates: start: 20101208, end: 20110102

REACTIONS (5)
  - SCREAMING [None]
  - NIGHTMARE [None]
  - SLEEP TERROR [None]
  - PANIC ATTACK [None]
  - SELF INJURIOUS BEHAVIOUR [None]
